FAERS Safety Report 5628293-3 (Version None)
Quarter: 2008Q1

REPORT INFORMATION
  Report Type: 
  Country: None (occurrence: None)
  Receive Date: 20080215
  Receipt Date: 20080207
  Transmission Date: 20080703
  Serious: Yes (Other)
  Sender: FDA-Public Use
  Company Number: US-PFIZER INC-2005081488

PATIENT
  Sex: Female
  Weight: 85.7 kg

DRUGS (13)
  1. CELEBREX [Suspect]
     Indication: OSTEOARTHRITIS
     Route: 048
  2. CELEBREX [Suspect]
     Indication: RHEUMATOID ARTHRITIS
  3. CELEBREX [Suspect]
     Indication: ARTHRALGIA
  4. BEXTRA [Suspect]
     Indication: OSTEOARTHRITIS
  5. BEXTRA [Suspect]
     Indication: RHEUMATOID ARTHRITIS
  6. TRIAMTERENE [Concomitant]
     Route: 065
  7. HYDROCHLOROTHIAZIDE [Concomitant]
     Route: 065
  8. DARVOCET-N 100 [Concomitant]
     Route: 065
  9. DEMEROL [Concomitant]
     Route: 065
  10. NEXIUM [Concomitant]
     Route: 048
  11. OXCARBAZEPINE [Concomitant]
     Route: 065
  12. TIGAN [Concomitant]
     Route: 065
  13. CYMBALTA [Concomitant]

REACTIONS (7)
  - BACK PAIN [None]
  - FIBROMYALGIA [None]
  - HIP ARTHROPLASTY [None]
  - KNEE ARTHROPLASTY [None]
  - MEDICAL DEVICE COMPLICATION [None]
  - PAIN [None]
  - THERAPEUTIC RESPONSE DECREASED [None]
